FAERS Safety Report 17709955 (Version 4)
Quarter: 2020Q2

REPORT INFORMATION
  Report Type: Spontaneous
  Country: US (occurrence: US)
  Receive Date: 20200427
  Receipt Date: 20200617
  Transmission Date: 20200714
  Serious: Yes (Other)
  Sender: FDA-Public Use
  Company Number: US-GLAXOSMITHKLINE-US2020AMR069459

PATIENT
  Sex: Female

DRUGS (3)
  1. ZEJULA [Suspect]
     Active Substance: NIRAPARIB
     Dosage: 300 MG, QD
  2. ZEJULA [Suspect]
     Active Substance: NIRAPARIB
     Indication: OVARIAN CANCER
     Dosage: 300 MG, QD
     Dates: start: 20200406
  3. ZEJULA [Suspect]
     Active Substance: NIRAPARIB
     Dosage: 100 MG, QD

REACTIONS (12)
  - Choking [Unknown]
  - Blood creatinine increased [Unknown]
  - Ill-defined disorder [Unknown]
  - Pruritus [Unknown]
  - Carbohydrate antigen 125 increased [Unknown]
  - Rash [Not Recovered/Not Resolved]
  - Constipation [Unknown]
  - Platelet count abnormal [Unknown]
  - Computerised tomogram abnormal [Unknown]
  - Unevaluable investigation [Unknown]
  - Ingrowing nail [Unknown]
  - Haemoglobin abnormal [Unknown]
